FAERS Safety Report 15372032 (Version 1)
Quarter: 2018Q3

REPORT INFORMATION
  Report Type: Spontaneous
  Country: JP (occurrence: JP)
  Receive Date: 20180911
  Receipt Date: 20180911
  Transmission Date: 20181010
  Serious: Yes (Other)
  Sender: FDA-Public Use
  Company Number: JP-BAYER-2018-170130

PATIENT
  Age: 77 Year
  Sex: Male

DRUGS (3)
  1. DENOSUMAB [Concomitant]
     Active Substance: DENOSUMAB
  2. XOFIGO [Suspect]
     Active Substance: RADIUM RA-223 DICHLORIDE
     Indication: HORMONE-REFRACTORY PROSTATE CANCER
     Dosage: 1 VIAL, Q4WK
     Route: 042
     Dates: start: 20180308, end: 20180712
  3. DEGARELIX [Concomitant]
     Active Substance: DEGARELIX

REACTIONS (2)
  - Metastases to lymph nodes [Not Recovered/Not Resolved]
  - Hormone-refractory prostate cancer [Not Recovered/Not Resolved]

NARRATIVE: CASE EVENT DATE: 20180712
